FAERS Safety Report 7471812-5 (Version None)
Quarter: 2011Q2

REPORT INFORMATION
  Report Type: 
  Country: None (occurrence: None)
  Receive Date: 20110511
  Receipt Date: 20100511
  Transmission Date: 20111010
  Serious: No
  Sender: FDA-Public Use
  Company Number: A0860632A

PATIENT
  Age: 75 Year
  Sex: Female

DRUGS (1)
  1. TYKERB [Suspect]
     Dosage: 250MG THREE TIMES PER DAY
     Route: 065
     Dates: start: 20100329

REACTIONS (5)
  - PRURITUS [None]
  - DIARRHOEA [None]
  - MENTAL IMPAIRMENT [None]
  - FATIGUE [None]
  - RASH [None]
